FAERS Safety Report 20055218 (Version 1)
Quarter: 2021Q4

REPORT INFORMATION
  Report Type: Spontaneous
  Country: US (occurrence: US)
  Receive Date: 20211110
  Receipt Date: 20211110
  Transmission Date: 20220303
  Serious: No
  Sender: FDA-Public Use
  Company Number: US-BAUSCH-BL-2021-036827

PATIENT
  Age: 67 Year
  Sex: Female

DRUGS (1)
  1. NAPHAZOLINE HYDROCHLORIDE\PHENIRAMINE MALEATE [Suspect]
     Active Substance: NAPHAZOLINE HYDROCHLORIDE\PHENIRAMINE MALEATE
     Indication: Eye allergy
     Route: 047
     Dates: start: 202110, end: 202110

REACTIONS (4)
  - Instillation site pain [Recovered/Resolved]
  - Periorbital swelling [Recovered/Resolved]
  - Instillation site erythema [Recovered/Resolved]
  - Asthenopia [Recovered/Resolved]

NARRATIVE: CASE EVENT DATE: 20211001
